FAERS Safety Report 14246016 (Version 4)
Quarter: 2018Q1

REPORT INFORMATION
  Report Type: Report from Study
  Country: US (occurrence: US)
  Receive Date: 20171204
  Receipt Date: 20180129
  Transmission Date: 20180508
  Serious: No
  Sender: FDA-Public Use
  Company Number: PHEH2017US038328

PATIENT
  Sex: Male
  Weight: 90.71 kg

DRUGS (2)
  1. COSENTYX [Suspect]
     Active Substance: SECUKINUMAB
     Indication: PSORIASIS
     Dosage: 300 MG, QMO
     Route: 058
  2. COSENTYX [Suspect]
     Active Substance: SECUKINUMAB
     Indication: RHEUMATOID ARTHRITIS

REACTIONS (7)
  - Drug ineffective [Unknown]
  - Delusional disorder, unspecified type [Unknown]
  - Muscle tightness [Unknown]
  - Chills [Unknown]
  - Hot flush [Unknown]
  - Psoriasis [Unknown]
  - Drug ineffective for unapproved indication [Unknown]
